FAERS Safety Report 6209766-1 (Version None)
Quarter: 2009Q2

REPORT INFORMATION
  Report Type: 
  Country: None (occurrence: None)
  Receive Date: 20090601
  Receipt Date: 20090525
  Transmission Date: 20091009
  Serious: Yes (Hospitalization)
  Sender: FDA-Public Use
  Company Number: FR-ASTRAZENECA-2009CG01001

PATIENT
  Age: 27114 Day
  Sex: Male

DRUGS (10)
  1. ATACAND [Suspect]
     Indication: HYPERTENSION
     Route: 048
     Dates: start: 20090129, end: 20090202
  2. TARDYFERON [Suspect]
     Indication: ANAEMIA
     Route: 048
     Dates: start: 20090129, end: 20090208
  3. PREVISCAN [Concomitant]
     Indication: THROMBOSIS PROPHYLAXIS
     Route: 048
     Dates: start: 20090116
  4. FUMAFER [Concomitant]
     Indication: ANAEMIA
     Route: 048
     Dates: start: 20090122, end: 20090128
  5. PERINDOPRIL ERBUMINE [Concomitant]
     Indication: HYPERTENSION
     Route: 048
     Dates: start: 20090122, end: 20090128
  6. NEXIUM [Concomitant]
     Indication: GASTROOESOPHAGEAL REFLUX DISEASE
     Route: 048
     Dates: start: 20090122, end: 20090129
  7. KARDEGIC [Concomitant]
     Indication: ISCHAEMIC HEART DISEASE PROPHYLAXIS
     Route: 048
     Dates: start: 20090122
  8. DAFALGAN [Concomitant]
     Indication: PAIN
     Route: 048
     Dates: start: 20090122
  9. LASIX [Concomitant]
     Indication: HYPERTENSION
     Route: 048
     Dates: start: 20090128
  10. KALEORID [Concomitant]
     Indication: BLOOD POTASSIUM DECREASED
     Route: 048
     Dates: start: 20090128

REACTIONS (1)
  - CUTANEOUS VASCULITIS [None]
